FAERS Safety Report 16424054 (Version 1)
Quarter: 2019Q2

REPORT INFORMATION
  Report Type: Spontaneous
  Country: FR (occurrence: FR)
  Receive Date: 20190613
  Receipt Date: 20190613
  Transmission Date: 20190711
  Serious: Yes (Hospitalization)
  Sender: FDA-Public Use
  Company Number: FR-ACCORD-132548

PATIENT
  Age: 80 Year
  Sex: Male
  Weight: 96 kg

DRUGS (13)
  1. VENTOLIN [Concomitant]
     Active Substance: ALBUTEROL SULFATE
  2. DAFALGAN [Concomitant]
     Active Substance: ACETAMINOPHEN
  3. NOVORAPID [Concomitant]
     Active Substance: INSULIN ASPART
  4. SEROPLEX [Suspect]
     Active Substance: ESCITALOPRAM OXALATE
     Indication: PRODUCT USED FOR UNKNOWN INDICATION
     Route: 048
     Dates: end: 201811
  5. ESOMEPRAZOLE/ESOMEPRAZOLE MAGNESIUM/ESOMEPRAZOLE SODIUM [Concomitant]
  6. DERMOVAL [Concomitant]
  7. INNOHEP [Concomitant]
     Active Substance: TINZAPARIN SODIUM
  8. DIFFU K [Concomitant]
     Active Substance: POTASSIUM CHLORIDE
  9. PICLOXYDINE [Concomitant]
     Active Substance: PICLOXYDINE
  10. TOUJEO [Concomitant]
     Active Substance: INSULIN GLARGINE
  11. THERALENE [Concomitant]
     Active Substance: TRIMEPRAZINE
  12. DESLORATADINE. [Concomitant]
     Active Substance: DESLORATADINE
  13. FUROSEMIDE. [Suspect]
     Active Substance: FUROSEMIDE
     Indication: HYPERTENSION
     Route: 048
     Dates: start: 20000209, end: 20190115

REACTIONS (1)
  - Pemphigoid [Not Recovered/Not Resolved]

NARRATIVE: CASE EVENT DATE: 20181112
